FAERS Safety Report 5069002-9 (Version None)
Quarter: 2006Q3

REPORT INFORMATION
  Report Type: 
  Country: None (occurrence: None)
  Receive Date: 20060802
  Receipt Date: 20060411
  Transmission Date: 20061208
  Serious: Yes (Hospitalization)
  Sender: FDA-Public Use
  Company Number: PHEH2006US04771

PATIENT
  Age: 16 Year
  Sex: Female
  Weight: 75 kg

DRUGS (3)
  1. ZELNORM [Suspect]
     Indication: IRRITABLE BOWEL SYNDROME
     Dosage: 6 MG, BID
     Route: 048
     Dates: start: 20060207, end: 20060211
  2. NEXIUM [Concomitant]
  3. MACRODANTIN [Suspect]
     Indication: URINARY TRACT INFECTION
     Dosage: 1 MG, BID
     Route: 048
     Dates: start: 20060209

REACTIONS (23)
  - ALANINE AMINOTRANSFERASE INCREASED [None]
  - ASPARTATE AMINOTRANSFERASE INCREASED [None]
  - BACTERIA URINE IDENTIFIED [None]
  - BLOOD BILIRUBIN INCREASED [None]
  - CHOLELITHIASIS [None]
  - CHOLESTASIS [None]
  - COAGULOPATHY [None]
  - DIARRHOEA [None]
  - DYSURIA [None]
  - FATIGUE [None]
  - HEPATITIS ACUTE [None]
  - HEPATOSPLENOMEGALY [None]
  - INFLAMMATION [None]
  - INTERNATIONAL NORMALISED RATIO INCREASED [None]
  - JAUNDICE [None]
  - MALAISE [None]
  - NAUSEA [None]
  - PAIN [None]
  - URINARY TRACT INFECTION [None]
  - URINE ANALYSIS ABNORMAL [None]
  - URINE BILIRUBIN INCREASED [None]
  - VOMITING [None]
  - WHITE BLOOD CELLS URINE POSITIVE [None]
